FAERS Safety Report 7390168-X (Version None)
Quarter: 2011Q2

REPORT INFORMATION
  Report Type: 
  Country: None (occurrence: None)
  Receive Date: 20110401
  Receipt Date: 20110321
  Transmission Date: 20111010
  Serious: Yes (Other)
  Sender: FDA-Public Use
  Company Number: PHHY2011US23420

PATIENT
  Sex: Female
  Weight: 56.236 kg

DRUGS (4)
  1. BACLOFEN [Concomitant]
     Indication: MUSCLE SPASTICITY
     Dosage: UNK
     Route: 048
  2. CITALOPRAM HYDROBROMIDE [Concomitant]
     Indication: DEPRESSION
     Dosage: UNK
     Route: 048
  3. GILENYA [Suspect]
     Indication: RELAPSING-REMITTING MULTIPLE SCLEROSIS
     Dosage: 0.5 MG, QD
     Route: 048
     Dates: start: 20110217
  4. GILENYA [Suspect]
     Dosage: UNK
     Route: 048

REACTIONS (5)
  - INCORRECT DOSE ADMINISTERED [None]
  - VOMITING [None]
  - DYSPEPSIA [None]
  - ABDOMINAL DISTENSION [None]
  - CHEST PAIN [None]
